FAERS Safety Report 14477572 (Version 1)
Quarter: 2018Q1

REPORT INFORMATION
  Report Type: Report from Study
  Country: US (occurrence: US)
  Receive Date: 20180201
  Receipt Date: 20180201
  Transmission Date: 20180509
  Serious: No
  Sender: FDA-Public Use
  Company Number: US-EXELIXIS-CABO-17011139

PATIENT
  Sex: Male

DRUGS (21)
  1. CLOTRIMAZOLE AND BETAMETHASONE [Concomitant]
     Active Substance: BETAMETHASONE\CLOTRIMAZOLE
  2. COMETRIQ [Suspect]
     Active Substance: CABOZANTINIB S-MALATE
     Indication: THYROID CANCER
     Dosage: 100 MG, QD
     Route: 048
     Dates: start: 20170831, end: 2017
  3. CARAFATE [Concomitant]
     Active Substance: SUCRALFATE
  4. GLUCOSAMINE [Concomitant]
     Active Substance: GLUCOSAMINE
  5. COMETRIQ [Suspect]
     Active Substance: CABOZANTINIB S-MALATE
     Dosage: 80 MG, QD
     Route: 048
     Dates: start: 2017
  6. COMPAZINE [Concomitant]
     Active Substance: PROCHLORPERAZINE MALEATE
  7. DICLOFENAC POTASSIUM. [Concomitant]
     Active Substance: DICLOFENAC POTASSIUM
  8. NASACORT [Concomitant]
     Active Substance: TRIAMCINOLONE ACETONIDE
  9. TYLENOL ARTHRITIS PAIN [Concomitant]
     Active Substance: ACETAMINOPHEN
  10. PANTOPRAZOLE SODIUM. [Concomitant]
     Active Substance: PANTOPRAZOLE SODIUM
  11. FLORAJEN3 [Concomitant]
  12. TIZANIDINE. [Concomitant]
     Active Substance: TIZANIDINE
  13. CENTRUM SILVER [Concomitant]
     Active Substance: MINERALS\VITAMINS
  14. FISH OIL [Concomitant]
     Active Substance: FISH OIL
  15. FLUCONAZOLE. [Concomitant]
     Active Substance: FLUCONAZOLE
  16. HYALURONIC ACID [Concomitant]
     Active Substance: HYALURONIC ACID
  17. NEUPOGEN [Concomitant]
     Active Substance: FILGRASTIM
  18. QUESTRAN [Concomitant]
     Active Substance: CHOLESTYRAMINE
  19. LEVOTHYROXIN [Concomitant]
     Active Substance: LEVOTHYROXINE
  20. METFORMIN [Concomitant]
     Active Substance: METFORMIN HYDROCHLORIDE
  21. OXYCODONE [Concomitant]
     Active Substance: OXYCODONE

REACTIONS (2)
  - Glossodynia [Unknown]
  - Oral pain [Unknown]
